FAERS Safety Report 10051383 (Version 1)
Quarter: 2014Q2

REPORT INFORMATION
  Report Type: Spontaneous
  Country: US (occurrence: US)
  Receive Date: 20140401
  Receipt Date: 20140401
  Transmission Date: 20141212
  Serious: No
  Sender: FDA-Public Use
  Company Number: US-PFIZER INC-2014090346

PATIENT
  Sex: Female

DRUGS (1)
  1. CELEBREX [Suspect]
     Dosage: UNK
     Dates: start: 201403

REACTIONS (4)
  - Eyelid oedema [Unknown]
  - Swelling face [Unknown]
  - Joint swelling [Unknown]
  - Peripheral swelling [Unknown]
